FAERS Safety Report 7581891-2 (Version None)
Quarter: 2011Q2

REPORT INFORMATION
  Report Type: 
  Country: None (occurrence: None)
  Receive Date: 20110629
  Receipt Date: 20110113
  Transmission Date: 20111010
  Serious: Yes (Other)
  Sender: FDA-Public Use
  Company Number: PHFR2010IE06092

PATIENT
  Sex: Female

DRUGS (6)
  1. VALPROIC ACID [Concomitant]
     Dosage: 1200 MG DAILY
     Route: 048
  2. CLOZAPINE [Suspect]
     Indication: SCHIZOPHRENIA
     Route: 048
     Dates: start: 19960117
  3. DIAZEPAM [Concomitant]
     Dosage: 15 MG DAILY
     Route: 048
  4. CITALOPRAM HYDROBROMIDE [Concomitant]
     Dosage: 20 MG DAILY
     Route: 048
  5. CLOZAPINE [Suspect]
     Indication: PSYCHOTIC DISORDER
     Dosage: 600 MG DAILY
     Route: 048
  6. KWELLS [Concomitant]
     Dosage: 300 MG DAILY
     Route: 048

REACTIONS (2)
  - WRIST FRACTURE [None]
  - FALL [None]
